FAERS Safety Report 11282587 (Version 1)
Quarter: 2015Q3

REPORT INFORMATION
  Report Type: Spontaneous
  Country: US (occurrence: US)
  Receive Date: 20150720
  Receipt Date: 20150720
  Transmission Date: 20151125
  Serious: Yes (Other)
  Sender: FDA-Public Use
  Company Number: US-AMGEN-USASP2015069812

PATIENT
  Age: 59 Year
  Sex: Female
  Weight: 62.13 kg

DRUGS (4)
  1. METHOTREXATE [Concomitant]
     Active Substance: METHOTREXATE
     Indication: RHEUMATOID ARTHRITIS
     Dosage: 7.5 MG, QWK (2.5 MG THREE PILLS)
  2. ASPIRIN                            /00002701/ [Concomitant]
     Active Substance: ASPIRIN
     Indication: ANTICOAGULANT THERAPY
     Dosage: UNK
  3. MELOXICAM. [Concomitant]
     Active Substance: MELOXICAM
     Indication: RHEUMATOID ARTHRITIS
     Dosage: 15 MG, QD
  4. ENBREL [Suspect]
     Active Substance: ETANERCEPT
     Indication: RHEUMATOID ARTHRITIS
     Dosage: 50 MG, QWK
     Route: 065

REACTIONS (13)
  - Post procedural haemorrhage [Unknown]
  - Disability [Unknown]
  - Mastitis [Recovered/Resolved]
  - Skin disorder [Unknown]
  - Type 1 diabetes mellitus [Unknown]
  - Intraductal proliferative breast lesion [Unknown]
  - Breast abscess [Recovered/Resolved]
  - Breast induration [Unknown]
  - Finger deformity [Not Recovered/Not Resolved]
  - Breast calcifications [Unknown]
  - Arterial repair [Recovered/Resolved]
  - Abscess drainage [Recovered/Resolved]
  - Musculoskeletal stiffness [Not Recovered/Not Resolved]

NARRATIVE: CASE EVENT DATE: 2007
